FAERS Safety Report 7563643-2 (Version None)
Quarter: 2011Q2

REPORT INFORMATION
  Report Type: 
  Country: None (occurrence: None)
  Receive Date: 20110622
  Receipt Date: 20110607
  Transmission Date: 20111010
  Serious: Yes (Hospitalization, Other)
  Sender: FDA-Public Use
  Company Number: BR-ROCHE-701792

PATIENT
  Age: 18 Year
  Sex: Male

DRUGS (1)
  1. ISOTRETINOIN [Suspect]
     Indication: ACNE
     Route: 048

REACTIONS (2)
  - HIDRADENITIS [None]
  - STEVENS-JOHNSON SYNDROME [None]
